FAERS Safety Report 13916253 (Version 2)
Quarter: 2017Q3

REPORT INFORMATION
  Report Type: Spontaneous
  Country: TR (occurrence: TR)
  Receive Date: 20170829
  Receipt Date: 20170911
  Transmission Date: 20171127
  Serious: Yes (Other)
  Sender: FDA-Public Use
  Company Number: TR-APOTEX-2017AP017447

PATIENT
  Age: 43 Year
  Sex: Male

DRUGS (4)
  1. OLANZAPINE. [Suspect]
     Active Substance: OLANZAPINE
     Indication: MANIA
     Dosage: 10 MG, UNK
     Route: 048
  2. CLONAZEPAM. [Interacting]
     Active Substance: CLONAZEPAM
     Indication: BIPOLAR DISORDER
  3. OLANZAPINE. [Interacting]
     Active Substance: OLANZAPINE
     Indication: BIPOLAR DISORDER
  4. CLONAZEPAM. [Interacting]
     Active Substance: CLONAZEPAM
     Indication: MANIA
     Dosage: 2 MG, UNK
     Route: 048

REACTIONS (5)
  - Coma scale abnormal [Recovered/Resolved]
  - Hypotension [Recovered/Resolved]
  - Drug interaction [Unknown]
  - Respiratory depression [Recovered/Resolved]
  - Altered state of consciousness [Recovered/Resolved]
